FAERS Safety Report 4801658-5 (Version None)
Quarter: 2005Q3

REPORT INFORMATION
  Report Type: 
  Country: None (occurrence: None)
  Receive Date: 20050929
  Receipt Date: 20050726
  Transmission Date: 20060218
  Serious: Yes (Hospitalization)
  Sender: FDA-Public Use
  Company Number: 05P-163-0306879-00

PATIENT
  Age: 69 Year
  Sex: Female
  Weight: 90.7194 kg

DRUGS (5)
  1. HUMIRA [Suspect]
     Indication: RHEUMATOID ARTHRITIS
     Dosage: 40 MG, 1 IN 2 WK SUBCUTANEOUS
     Route: 058
     Dates: start: 20050201
  2. METHOTREXATE [Concomitant]
  3. PREDNISONE [Concomitant]
  4. FOLIC ACID [Concomitant]
  5. ZOLPIDEM TARTRATE [Concomitant]

REACTIONS (3)
  - CHOLELITHIASIS [None]
  - HEPATIC ENZYME INCREASED [None]
  - INJECTION SITE PAIN [None]
